FAERS Safety Report 19473344 (Version 1)
Quarter: 2021Q2

REPORT INFORMATION
  Report Type: Spontaneous
  Country: US (occurrence: US)
  Receive Date: 20210629
  Receipt Date: 20210629
  Transmission Date: 20210717
  Serious: Yes (Other)
  Sender: FDA-Public Use
  Company Number: US-FRESENIUS KABI-FK202106571

PATIENT
  Age: 47 Year
  Sex: Male

DRUGS (3)
  1. MIDAZOLAM. [Concomitant]
     Active Substance: MIDAZOLAM
     Indication: ANAESTHESIA
     Route: 065
  2. PROPOFOL (MANUFACTURER UNKNOWN) [Suspect]
     Active Substance: PROPOFOL
     Indication: ANAESTHESIA
     Route: 065
  3. PHENYLEPHRINE HYDROCHLORIDE INJECTION (MANUFACTURER UNKNOWN) [Suspect]
     Active Substance: PHENYLEPHRINE HYDROCHLORIDE
     Indication: SHOCK
     Route: 065

REACTIONS (2)
  - Circulatory collapse [Recovered/Resolved]
  - Right ventricular failure [Recovered/Resolved]
